FAERS Safety Report 7707598-6 (Version None)
Quarter: 2011Q3

REPORT INFORMATION
  Report Type: 
  Country: None (occurrence: None)
  Receive Date: 20110824
  Receipt Date: 20110819
  Transmission Date: 20111222
  Serious: Yes (Death)
  Sender: FDA-Public Use
  Company Number: US-ABBOTT-11P-163-0838145-00

PATIENT
  Sex: Male
  Weight: 59.928 kg

DRUGS (3)
  1. MS CONTIN [Concomitant]
     Indication: PRODUCT USED FOR UNKNOWN INDICATION
  2. LUPRON DEPOT [Suspect]
     Indication: PROSTATE CANCER
     Route: 030
     Dates: start: 20070621
  3. DURAGESIC-100 [Concomitant]

REACTIONS (1)
  - PROSTATE CANCER METASTATIC [None]
